FAERS Safety Report 14928207 (Version 1)
Quarter: 2018Q2

REPORT INFORMATION
  Report Type: Spontaneous
  Country: US (occurrence: US)
  Receive Date: 20180504
  Receipt Date: 20180504
  Transmission Date: 20180711
  Serious: No
  Sender: FDA-Public Use
  Company Number: None

PATIENT
  Sex: Female
  Weight: 25.85 kg

DRUGS (3)
  1. NORDITROPIN [Suspect]
     Active Substance: SOMATROPIN
     Indication: TURNER^S SYNDROME
     Dosage: ?          OTHER FREQUENCY:TUB;?
     Route: 058
     Dates: start: 201401
  2. NORDITROPIN [Suspect]
     Active Substance: SOMATROPIN
     Indication: BODY HEIGHT BELOW NORMAL
     Dosage: ?          OTHER FREQUENCY:TUB;?
     Route: 058
     Dates: start: 201401
  3. NORDITROPIN [Suspect]
     Active Substance: SOMATROPIN
     Indication: GONADAL DYSGENESIS
     Dosage: ?          OTHER FREQUENCY:TUB;?
     Route: 058
     Dates: start: 201401

REACTIONS (1)
  - Bone pain [None]
